FAERS Safety Report 14665305 (Version 1)
Quarter: 2018Q1

REPORT INFORMATION
  Report Type: Spontaneous
  Country: US (occurrence: US)
  Receive Date: 20180321
  Receipt Date: 20180321
  Transmission Date: 20180509
  Serious: Yes (Life-Threatening, Other)
  Sender: FDA-Public Use
  Company Number: US-MYLANLABS-2018M1018045

PATIENT
  Sex: Female

DRUGS (2)
  1. EPINEPHRINE INJECTION USP AUTO-INJECTOR [Suspect]
     Active Substance: EPINEPHRINE
     Indication: ANAPHYLACTIC REACTION
  2. EPINEPHRINE INJECTION USP AUTO-INJECTOR [Suspect]
     Active Substance: EPINEPHRINE
     Indication: MAST CELL ACTIVATION SYNDROME
     Dosage: UNK
     Route: 058

REACTIONS (4)
  - Device failure [Recovered/Resolved]
  - Product use issue [Unknown]
  - Incorrect dose administered by device [Recovered/Resolved]
  - Drug ineffective [Recovered/Resolved]
